FAERS Safety Report 8717928 (Version 4)
Quarter: 2012Q4

REPORT INFORMATION
  Report Type: 
  Country: GB (occurrence: GB)
  Receive Date: 20120810
  Receipt Date: 20121023
  Transmission Date: 20130627
  Serious: Yes (Death, Hospitalization, Other)
  Sender: FDA-Public Use
  Company Number: GB-ROCHE-1099612

PATIENT
  Age: 59 Year
  Sex: Female

DRUGS (7)
  1. ROACTEMRA [Suspect]
     Indication: RHEUMATOID ARTHRITIS
     Dosage: other infusions on 10 feb, 9 Mar and 13 Jul 2012
     Route: 042
     Dates: start: 20111215
  2. WARFARIN [Concomitant]
     Indication: DIVERTICULITIS
     Dosage: As required
     Route: 048
  3. FLURBIPROFEN [Concomitant]
     Indication: ARTHRALGIA
     Route: 048
  4. PREDNISOLON [Concomitant]
     Indication: ARTHRITIS
     Route: 048
  5. OMEPRAZOLE [Concomitant]
     Indication: PROPHYLAXIS AGAINST GASTROINTESTINAL ULCER
     Route: 048
  6. TRAMADOL [Concomitant]
     Indication: ANALGESIC THERAPY
     Dosage: Frequency QDS
     Route: 048
  7. PARACETAMOL [Concomitant]
     Dosage: Frequency QDS
     Route: 065

REACTIONS (8)
  - Abscess rupture [Fatal]
  - Deep vein thrombosis [Unknown]
  - C-reactive protein increased [Unknown]
  - Back pain [Unknown]
  - Anaemia [Unknown]
  - Diverticulum [Unknown]
  - Urinary tract infection [Unknown]
  - Rheumatoid arthritis [Unknown]
